FAERS Safety Report 6055061-3 (Version None)
Quarter: 2009Q1

REPORT INFORMATION
  Report Type: 
  Country: None (occurrence: None)
  Receive Date: 20090122
  Receipt Date: 20090111
  Transmission Date: 20090719
  Serious: Yes (Death)
  Sender: FDA-Public Use
  Company Number: A-US2007-18236

PATIENT
  Age: 17 Year
  Sex: Female

DRUGS (1)
  1. VENTAVIS [Suspect]
     Indication: PULMONARY ARTERIAL HYPERTENSION
     Dosage: 120 UG, RESPIRATORY
     Route: 055
     Dates: start: 20060828, end: 20070528

REACTIONS (1)
  - DISEASE PROGRESSION [None]
